FAERS Safety Report 11983890 (Version 1)
Quarter: 2016Q1

REPORT INFORMATION
  Report Type: Spontaneous
  Country: US (occurrence: US)
  Receive Date: 20160201
  Receipt Date: 20160201
  Transmission Date: 20160526
  Serious: No
  Sender: FDA-Public Use
  Company Number: US-ASTRAZENECA-2016SE08896

PATIENT
  Sex: Female
  Weight: 74 kg

DRUGS (5)
  1. LETROZOLE. [Concomitant]
     Active Substance: LETROZOLE
  2. FASLODEX [Suspect]
     Active Substance: FULVESTRANT
     Indication: BREAST CANCER FEMALE
     Route: 030
     Dates: start: 201308, end: 201401
  3. IBRANCE [Suspect]
     Active Substance: PALBOCICLIB
     Indication: BREAST CANCER FEMALE
     Route: 048
     Dates: start: 20150603, end: 20151005
  4. CAPECITABINE. [Concomitant]
     Active Substance: CAPECITABINE
  5. GEMCITABINE [Concomitant]
     Active Substance: GEMCITABINE\GEMCITABINE HYDROCHLORIDE

REACTIONS (12)
  - Dyspnoea [Not Recovered/Not Resolved]
  - Dizziness [Unknown]
  - Abdominal pain [Unknown]
  - Fatigue [Unknown]
  - Cytopenia [Not Recovered/Not Resolved]
  - Oropharyngeal pain [Unknown]
  - Fluid retention [Unknown]
  - Nausea [Unknown]
  - Hepatic enzyme increased [Not Recovered/Not Resolved]
  - White blood cell count decreased [Unknown]
  - Arthritis [Unknown]
  - Constipation [Unknown]
